FAERS Safety Report 19595301 (Version 2)
Quarter: 2021Q4

REPORT INFORMATION
  Report Type: Spontaneous
  Country: US (occurrence: US)
  Receive Date: 20210722
  Receipt Date: 20211028
  Transmission Date: 20220303
  Serious: No
  Sender: FDA-Public Use
  Company Number: US-PFIZER INC-2021469779

PATIENT
  Age: 57 Year

DRUGS (2)
  1. ESTRING [Suspect]
     Active Substance: ESTRADIOL
     Indication: Hot flush
     Dosage: 2 MG
  2. ESTRING [Suspect]
     Active Substance: ESTRADIOL
     Indication: Oestrogen deficiency

REACTIONS (3)
  - Therapeutic response unexpected [Unknown]
  - Off label use [Unknown]
  - Drug effective for unapproved indication [Unknown]
